FAERS Safety Report 8763203 (Version 2)
Quarter: 2012Q4

REPORT INFORMATION
  Report Type: Report from Study
  Country: JP (occurrence: JP)
  Receive Date: 20120831
  Receipt Date: 20121009
  Transmission Date: 20130627
  Serious: Yes (Hospitalization)
  Sender: FDA-Public Use
  Company Number: JP-VERTEX PHARMACEUTICAL INC.-AE-2012-012037

PATIENT
  Age: 41 Year
  Sex: Female

DRUGS (6)
  1. VX-950 [Suspect]
     Indication: HEPATITIS C
     Dosage: 1500 mg, qd
     Route: 048
     Dates: start: 20120802, end: 20120804
  2. RIBAVIRIN [Suspect]
     Indication: HEPATITIS C
     Dosage: 600 mg, qd
     Route: 048
     Dates: start: 20120802, end: 20120804
  3. RIBAVIRIN [Suspect]
     Dosage: 600 mg, qd
     Route: 048
     Dates: start: 20120809
  4. PEGINTERFERON ALFA-2B [Suspect]
     Indication: HEPATITIS C
     Dosage: 1.5 ?g/kg, weekly
     Route: 058
     Dates: start: 20120802, end: 20120804
  5. PEGINTERFERON ALFA-2B [Suspect]
     Dosage: 1.5 ?g/kg, weekly
     Route: 058
     Dates: start: 20120809
  6. LOXOPROFEN [Concomitant]
     Dosage: 1 DF, qd
     Route: 048
     Dates: start: 20120802

REACTIONS (1)
  - Toxic skin eruption [Recovered/Resolved]
